FAERS Safety Report 7061600-6 (Version None)
Quarter: 2010Q4

REPORT INFORMATION
  Report Type: 
  Country: None (occurrence: None)
  Receive Date: 20101026
  Receipt Date: 20101019
  Transmission Date: 20110411
  Serious: Yes (Hospitalization, Other)
  Sender: FDA-Public Use
  Company Number: US-SANOFI-AVENTIS-2010SA064751

PATIENT
  Sex: Female

DRUGS (2)
  1. MULTAQ [Suspect]
     Indication: ATRIAL FIBRILLATION
     Route: 048
     Dates: start: 20100901, end: 20101001
  2. MULTAQ [Suspect]
     Route: 048
     Dates: start: 20101001, end: 20101018

REACTIONS (5)
  - ATRIAL FLUTTER [None]
  - DIARRHOEA [None]
  - DYSPNOEA [None]
  - MALAISE [None]
  - UNDERDOSE [None]
